FAERS Safety Report 4434161-5 (Version None)
Quarter: 2004Q3

REPORT INFORMATION
  Report Type: 
  Country: None (occurrence: None)
  Receive Date: 20040825
  Receipt Date: 20040812
  Transmission Date: 20050211
  Serious: Yes (Hospitalization, Other)
  Sender: FDA-Public Use
  Company Number: 2004055784

PATIENT
  Sex: Male

DRUGS (3)
  1. ATORVASTATIN CALCIUM [Suspect]
     Indication: ILL-DEFINED DISORDER
     Dosage: ORAL
     Route: 048
  2. RAMIPRIL [Concomitant]
  3. PHENPROCOUMON (PHENPROCOUMON) [Concomitant]

REACTIONS (2)
  - RHABDOMYOLYSIS [None]
  - TROPONIN T INCREASED [None]
